FAERS Safety Report 8824046 (Version 2)
Quarter: 2012Q4

REPORT INFORMATION
  Report Type: 
  Country: TW (occurrence: TW)
  Receive Date: 20121004
  Receipt Date: 20121009
  Transmission Date: 20130627
  Serious: Yes (Hospitalization, Other)
  Sender: FDA-Public Use
  Company Number: TW-AMGEN-TWNSP2012062111

PATIENT
  Age: 48 Year
  Sex: Female

DRUGS (13)
  1. ENBREL [Suspect]
     Indication: RHEUMATOID ARTHRITIS
     Dosage: 25 mg, 2x/week
     Route: 058
     Dates: start: 20110629, end: 20120921
  2. CALCIUM CARBONATE [Concomitant]
     Dosage: 500 mg, 2x/day
     Route: 048
  3. ACYCLOVIR                          /00587301/ [Concomitant]
     Dosage: UNK, Q4H
     Route: 061
  4. RHIN [Concomitant]
     Dosage: 1 DF, Qid
     Route: 048
  5. SULINDAC [Concomitant]
     Dosage: 200 mg, BID
     Route: 048
  6. LEVOCETIRIZINE [Concomitant]
     Dosage: 5 mg, BID
     Route: 048
  7. BISOPROLOL [Concomitant]
     Dosage: 5 mg, QD
     Route: 048
  8. ULTRACET [Concomitant]
     Dosage: 1 DF BID and HS
     Route: 048
  9. MTX                                /00113801/ [Concomitant]
     Dosage: 10 mg, weekly
     Route: 048
     Dates: end: 20120906
  10. FOLIC ACID [Concomitant]
     Dosage: 5 mg, weekly
     Route: 048
  11. PANTOPRAZOLE [Concomitant]
     Dosage: 1 DF, QDAC
     Route: 048
  12. ESTAZOLAM [Concomitant]
     Dosage: 2 mg, HS
     Route: 048
  13. METISONE [Concomitant]
     Dosage: 4 mg, BID
     Route: 048

REACTIONS (12)
  - Pollakiuria [Unknown]
  - Dysuria [Unknown]
  - Abdominal pain lower [Unknown]
  - Palpitations [Unknown]
  - Diarrhoea [Unknown]
  - Nausea [Unknown]
  - Productive cough [Unknown]
  - Sputum discoloured [Unknown]
  - Eyelid oedema [Unknown]
  - Malaise [Unknown]
  - Sputum purulent [Unknown]
  - Urinary tract infection [Unknown]
